FAERS Safety Report 9177645 (Version 2)
Quarter: 2012Q4

REPORT INFORMATION
  Report Type: 
  Country: US (occurrence: US)
  Receive Date: 20121005
  Receipt Date: 20121008
  Transmission Date: 20130627
  Serious: Yes (Other)
  Sender: FDA-Public Use
  Company Number: US-RB-045024-12

PATIENT
  Age: 24 Year
  Sex: Male

DRUGS (1)
  1. MUCINEX FAST MAX ADULT CONGESTION + COUGH [Suspect]
     Indication: PRODUCT USED FOR UNKNOWN INDICATION
     Dosage: Patient took 2 teaspoons of product.
     Route: 048
     Dates: start: 20120923

REACTIONS (5)
  - Pharyngeal oedema [Recovered/Resolved]
  - Dysphagia [Recovered/Resolved]
  - Dyspnoea [Recovered/Resolved]
  - Palpitations [Recovered/Resolved]
  - Expired drug administered [Recovered/Resolved]
